FAERS Safety Report 7049657-X (Version None)
Quarter: 2010Q4

REPORT INFORMATION
  Report Type: 
  Country: None (occurrence: None)
  Receive Date: 20101018
  Receipt Date: 20101008
  Transmission Date: 20110411
  Serious: Yes (Hospitalization)
  Sender: FDA-Public Use
  Company Number: A0885664A

PATIENT
  Age: 54 Year
  Sex: Female

DRUGS (5)
  1. LAMICTAL [Suspect]
     Indication: BIPOLAR DISORDER
     Dosage: 100MG TWICE PER DAY
     Route: 048
     Dates: start: 20100601, end: 20100901
  2. ATIVAN [Concomitant]
  3. SEROQUEL [Concomitant]
  4. AMBIEN [Concomitant]
  5. VYVANSE [Concomitant]

REACTIONS (3)
  - ANXIETY [None]
  - FEAR [None]
  - SLEEP TERROR [None]
